FAERS Safety Report 7728867-X (Version None)
Quarter: 2011Q3

REPORT INFORMATION
  Report Type: 
  Country: None (occurrence: None)
  Receive Date: 20110831
  Receipt Date: 20110831
  Transmission Date: 20111222
  Serious: Yes (Disabling)
  Sender: FDA-Public Use
  Company Number: None

PATIENT
  Sex: Female
  Weight: 53.5244 kg

DRUGS (2)
  1. OMNISCAN [Suspect]
     Indication: NUCLEAR MAGNETIC RESONANCE IMAGING
     Dosage: 20 ML X1 IM
     Route: 030
     Dates: start: 20020617
  2. OMNISCAN [Suspect]
     Indication: NUCLEAR MAGNETIC RESONANCE IMAGING
     Dosage: 20 ML X1 IM
     Route: 030
     Dates: start: 20030707

REACTIONS (10)
  - ARTHRALGIA [None]
  - MOVEMENT DISORDER [None]
  - JOINT HYPEREXTENSION [None]
  - SKIN ATROPHY [None]
  - PAIN [None]
  - RASH [None]
  - RENAL CYST [None]
  - MUSCULAR WEAKNESS [None]
  - JOINT CREPITATION [None]
  - ATROPHY [None]
